FAERS Safety Report 10253572 (Version 1)
Quarter: 2014Q2

REPORT INFORMATION
  Report Type: Spontaneous
  Country: US (occurrence: US)
  Receive Date: 20140623
  Receipt Date: 20140623
  Transmission Date: 20141212
  Serious: Yes (Other)
  Sender: FDA-Public Use
  Company Number: US-SA-2014SA080202

PATIENT
  Age: 56 Year
  Sex: Female

DRUGS (10)
  1. AUBAGIO [Suspect]
     Indication: PRODUCT USED FOR UNKNOWN INDICATION
     Route: 048
     Dates: start: 20140101
  2. CRESTOR [Concomitant]
  3. SYNTHROID [Concomitant]
  4. AMLODIPINE [Concomitant]
  5. OMEPRAZOLE [Concomitant]
  6. ESTRADIOL [Concomitant]
  7. COPAXONE [Concomitant]
  8. LORAZEPAM [Concomitant]
  9. PREDNISONE [Concomitant]
  10. METHOTREXATE [Concomitant]

REACTIONS (4)
  - Dizziness [Unknown]
  - Hypoaesthesia [Unknown]
  - Multiple sclerosis relapse [Unknown]
  - Fatigue [Unknown]
